FAERS Safety Report 10153386 (Version 1)
Quarter: 2014Q2

REPORT INFORMATION
  Report Type: Spontaneous
  Country: US (occurrence: US)
  Receive Date: 20140505
  Receipt Date: 20140505
  Transmission Date: 20141212
  Serious: No
  Sender: FDA-Public Use
  Company Number: US-ASTRAZENECA-2014SE14431

PATIENT
  Age: 43 Year
  Sex: Female
  Weight: 60.8 kg

DRUGS (2)
  1. PRILOSEC [Suspect]
     Indication: GASTROOESOPHAGEAL REFLUX DISEASE
     Route: 048
     Dates: start: 201201, end: 201305
  2. PRILOSEC [Suspect]
     Indication: HIATUS HERNIA
     Route: 048
     Dates: start: 201201, end: 201305

REACTIONS (7)
  - Hypotension [Recovered/Resolved]
  - Anxiety [Unknown]
  - Cardiac flutter [Unknown]
  - Eating disorder [Unknown]
  - Dizziness [Unknown]
  - Dizziness [Unknown]
  - Insomnia [Recovering/Resolving]
